FAERS Safety Report 6014448-5 (Version None)
Quarter: 2008Q4

REPORT INFORMATION
  Report Type: 
  Country: None (occurrence: None)
  Receive Date: 20081219
  Receipt Date: 20080813
  Transmission Date: 20090506
  Serious: No
  Sender: FDA-Public Use
  Company Number: A0734358A

PATIENT
  Age: 75 Year
  Sex: Male

DRUGS (5)
  1. AVODART [Suspect]
     Dosage: .5MG PER DAY
     Route: 048
  2. FLOMAX [Concomitant]
  3. PROTONIX [Concomitant]
  4. VITAMINS [Concomitant]
  5. UNKNOWN MEDICATION [Concomitant]

REACTIONS (4)
  - HAEMATOCHEZIA [None]
  - ORAL DISCOMFORT [None]
  - PRODUCT QUALITY ISSUE [None]
  - PROSTATIC SPECIFIC ANTIGEN DECREASED [None]
